FAERS Safety Report 5650571-2 (Version None)
Quarter: 2008Q1

REPORT INFORMATION
  Report Type: 
  Country: None (occurrence: None)
  Receive Date: 20080304
  Receipt Date: 20080304
  Transmission Date: 20080703
  Serious: Yes (Other)
  Sender: FDA-Public Use
  Company Number: None

PATIENT
  Age: 53 Year
  Sex: Female
  Weight: 65.7716 kg

DRUGS (3)
  1. CREST PRO HEALTH ORAL RINSE [Suspect]
     Indication: BREATH ODOUR
     Dosage: 2 TEASPOONFULS ONCE A DAY PO
     Route: 048
     Dates: start: 20080120, end: 20080226
  2. CREST PRO HEALTH ORAL RINSE [Suspect]
     Indication: DENTAL PLAQUE
     Dosage: 2 TEASPOONFULS ONCE A DAY PO
     Route: 048
     Dates: start: 20080120, end: 20080226
  3. CREST PRO HEALTH ORAL RINSE [Suspect]
     Indication: GINGIVITIS
     Dosage: 2 TEASPOONFULS ONCE A DAY PO
     Route: 048
     Dates: start: 20080120, end: 20080226

REACTIONS (2)
  - DYSGEUSIA [None]
  - TOOTH DISCOLOURATION [None]
